FAERS Safety Report 15525560 (Version 2)
Quarter: 2020Q4

REPORT INFORMATION
  Report Type: Spontaneous
  Country: IT (occurrence: IT)
  Receive Date: 20181019
  Receipt Date: 20201029
  Transmission Date: 20210113
  Serious: Yes (Death, Other)
  Sender: FDA-Public Use
  Company Number: PHHY2018IT131507

PATIENT
  Age: 53 Year
  Sex: Male

DRUGS (12)
  1. CARBOPLATIN. [Suspect]
     Active Substance: CARBOPLATIN
     Dosage: UNK
     Route: 065
     Dates: start: 201509
  2. GEMCITABINE. [Suspect]
     Active Substance: GEMCITABINE
     Indication: PLEURAL MESOTHELIOMA MALIGNANT
     Dosage: UNK
     Route: 065
     Dates: start: 201502
  3. GEMCITABINE. [Suspect]
     Active Substance: GEMCITABINE
     Dosage: UNK
     Route: 065
     Dates: start: 201509
  4. CISPLATIN. [Suspect]
     Active Substance: CISPLATIN
     Dosage: UNK
     Route: 042
     Dates: start: 201505
  5. VARGATEF [Suspect]
     Active Substance: NINTEDANIB
     Dosage: 400 MG, QD
     Route: 048
     Dates: start: 201505
  6. VINORELBINE [Suspect]
     Active Substance: VINORELBINE TARTRATE
     Indication: PLEURAL MESOTHELIOMA MALIGNANT
     Dosage: UNK
     Route: 065
     Dates: start: 201512
  7. CARBOPLATIN. [Suspect]
     Active Substance: CARBOPLATIN
     Indication: PLEURAL MESOTHELIOMA MALIGNANT
     Dosage: UNK
     Route: 065
     Dates: start: 201502
  8. TRABECTEDIN [Suspect]
     Active Substance: TRABECTEDIN
     Indication: PLEURAL MESOTHELIOMA MALIGNANT
     Dosage: 1.1 MG/M2, (IV TRABECTEDIN INFUSION IN 5% GLUCOSE OVER 3 HOURS EVERY 21 DAYS)
     Route: 042
     Dates: start: 201501
  9. PEMETREXED. [Suspect]
     Active Substance: PEMETREXED
     Indication: PLEURAL MESOTHELIOMA MALIGNANT
     Dosage: 500 MG/M2 OF PEMETREXED
     Route: 065
     Dates: start: 201404
  10. VARGATEF [Suspect]
     Active Substance: NINTEDANIB
     Indication: PLEURAL MESOTHELIOMA MALIGNANT
     Dosage: 400 MG, QD
     Route: 048
  11. CISPLATIN. [Suspect]
     Active Substance: CISPLATIN
     Indication: PLEURAL MESOTHELIOMA MALIGNANT
     Dosage: 75 MG/M2 OF CISPLATIN
     Route: 042
     Dates: start: 201404
  12. PEMETREXED. [Suspect]
     Active Substance: PEMETREXED
     Dosage: UNK
     Route: 042
     Dates: start: 201505

REACTIONS (4)
  - Embolism venous [Unknown]
  - Malignant neoplasm progression [Fatal]
  - Off label use [Unknown]
  - Circumoral oedema [Unknown]

NARRATIVE: CASE EVENT DATE: 201412
